FAERS Safety Report 10417717 (Version 1)
Quarter: 2014Q3

REPORT INFORMATION
  Report Type: Spontaneous
  Country: US (occurrence: None)
  Receive Date: 20140828
  Receipt Date: 20140828
  Transmission Date: 20150326
  Serious: Yes (Hospitalization)
  Sender: FDA-Public Use
  Company Number: None

PATIENT
  Age: 87 Year
  Sex: Female
  Weight: 87 kg

DRUGS (4)
  1. ASPIRIN. [Concomitant]
     Active Substance: ASPIRIN
  2. DABIGATRAN 150MG BOEHRINGER INGELHEIM [Suspect]
     Active Substance: DABIGATRAN
     Indication: ATRIAL FIBRILLATION
     Dosage: ONE  BID ORAL
     Route: 048
     Dates: start: 20131010, end: 20140821
  3. GOODY^S POWER (ASPIRIN, ACETAMINOPHEN AND CAFFEINE) [Concomitant]
  4. DABIGATRAN [Concomitant]
     Active Substance: DABIGATRAN

REACTIONS (4)
  - Lower gastrointestinal haemorrhage [None]
  - Pain [None]
  - Anaemia [None]
  - Renal disorder [None]

NARRATIVE: CASE EVENT DATE: 20140821
